FAERS Safety Report 10439659 (Version 1)
Quarter: 2014Q3

REPORT INFORMATION
  Report Type: Report from Study
  Country: US (occurrence: US)
  Receive Date: 20140908
  Receipt Date: 20140908
  Transmission Date: 20150326
  Serious: Yes (Other)
  Sender: FDA-Public Use
  Company Number: US-PFIZER INC-2014245102

PATIENT
  Age: 47 Year
  Sex: Male
  Weight: 50.79 kg

DRUGS (1)
  1. CRIZOTINIB [Suspect]
     Active Substance: CRIZOTINIB
     Indication: NON-SMALL CELL LUNG CANCER
     Dosage: 250 MG, BID
     Dates: start: 20120322, end: 20130614

REACTIONS (4)
  - Chest pain [Unknown]
  - Pyrexia [Unknown]
  - Oesophageal disorder [Unknown]
  - Abdominal pain [Unknown]
